FAERS Safety Report 10816333 (Version 1)
Quarter: 2015Q1

REPORT INFORMATION
  Report Type: Spontaneous
  Country: SG (occurrence: SG)
  Receive Date: 20150218
  Receipt Date: 20150218
  Transmission Date: 20150721
  Serious: Yes (Other)
  Sender: FDA-Public Use
  Company Number: SG-BAYER-2015-022449

PATIENT
  Age: 81 Year
  Sex: Male

DRUGS (1)
  1. NIFEDIPINE CC 30 TABLET 30 MG [Suspect]
     Active Substance: NIFEDIPINE

REACTIONS (2)
  - Somnolence [Unknown]
  - Discomfort [Unknown]

NARRATIVE: CASE EVENT DATE: 20150109
